FAERS Safety Report 7471704-1 (Version None)
Quarter: 2011Q2

REPORT INFORMATION
  Report Type: 
  Country: None (occurrence: None)
  Receive Date: 20110502
  Receipt Date: 20110426
  Transmission Date: 20111010
  Serious: Yes (Death)
  Sender: FDA-Public Use
  Company Number: 1000020104

PATIENT
  Sex: Male
  Weight: 64 kg

DRUGS (5)
  1. RABEPRAZOLE SODIUM [Suspect]
     Dosage: 20 MG (20 MG, 1 IN 1 D),ORAL
     Route: 048
  2. OLANZAPINE (OLANZAPINE) (TABLETS) (OLANZAPINE) [Concomitant]
  3. RISPERIDONE (RISPERIDONE) (TABLETS) (RISPERIDONE) [Concomitant]
  4. OXAZEPAM (OXAZEPAM) (OXAZEPAM) [Concomitant]
  5. CITALOPRAM HYDROBROMIDE [Suspect]
     Dosage: ORAL
     Route: 048
     Dates: start: 20100408

REACTIONS (1)
  - DRUG LEVEL ABOVE THERAPEUTIC [None]
